FAERS Safety Report 23065304 (Version 1)
Quarter: 2023Q4

REPORT INFORMATION
  Report Type: Spontaneous
  Country: TR (occurrence: TR)
  Receive Date: 20231013
  Receipt Date: 20231013
  Transmission Date: 20240110
  Serious: Yes (Other)
  Sender: FDA-Public Use
  Company Number: TR-PFIZER INC-PV202300164713

PATIENT
  Age: 68 Year
  Sex: Female

DRUGS (1)
  1. LORLATINIB [Suspect]
     Active Substance: LORLATINIB
     Dosage: UNK

REACTIONS (7)
  - Hallucination, visual [Unknown]
  - Hallucination, auditory [Unknown]
  - Generalised oedema [Unknown]
  - Oedema [Unknown]
  - Hyperlipidaemia [Unknown]
  - Cognitive disorder [Unknown]
  - Weight increased [Unknown]
